FAERS Safety Report 11882393 (Version 1)
Quarter: 2015Q4

REPORT INFORMATION
  Report Type: Spontaneous
  Country: US (occurrence: None)
  Receive Date: 20151230
  Receipt Date: 20151230
  Transmission Date: 20160305
  Serious: Yes (Hospitalization)
  Sender: FDA-Public Use
  Company Number: None

PATIENT
  Sex: Female
  Weight: 112.49 kg

DRUGS (1)
  1. LYRICA [Suspect]
     Active Substance: PREGABALIN
     Indication: FIBROMYALGIA

REACTIONS (12)
  - Dizziness [None]
  - Nausea [None]
  - Drug withdrawal syndrome [None]
  - Muscle spasms [None]
  - Restless legs syndrome [None]
  - Constipation [None]
  - Haematochezia [None]
  - Anxiety [None]
  - Decreased appetite [None]
  - Headache [None]
  - Pyrexia [None]
  - Feeling abnormal [None]
